FAERS Safety Report 13876377 (Version 1)
Quarter: 2017Q3

REPORT INFORMATION
  Report Type: Spontaneous
  Country: US (occurrence: US)
  Receive Date: 20170817
  Receipt Date: 20170817
  Transmission Date: 20171127
  Serious: No
  Sender: FDA-Public Use
  Company Number: US-BAYER-2017-156247

PATIENT
  Age: 58 Year
  Weight: 58.96 kg

DRUGS (5)
  1. HYDROCODONE [Concomitant]
     Active Substance: HYDROCODONE
  2. GABAPENTIN. [Concomitant]
     Active Substance: GABAPENTIN
  3. CLONAZEPAM. [Concomitant]
     Active Substance: CLONAZEPAM
  4. TIZANIDINE. [Concomitant]
     Active Substance: TIZANIDINE
  5. MIRALAX [Suspect]
     Active Substance: POLYETHYLENE GLYCOL 3350
     Indication: GASTROINTESTINAL DISORDER
     Dosage: ONE PACKET MIXED IN 4 TO 8OZ LIQUID
     Route: 048
     Dates: start: 2017

REACTIONS (1)
  - Product use issue [Unknown]
